FAERS Safety Report 8513924-0 (Version None)
Quarter: 2012Q3

REPORT INFORMATION
  Report Type: 
  Country: None (occurrence: None)
  Receive Date: 20120717
  Receipt Date: 20120703
  Transmission Date: 20120928
  Serious: Yes (Other)
  Sender: FDA-Public Use
  Company Number: US-009507513-2008-186445-NL

PATIENT

DRUGS (1)
  1. NUVARING [Suspect]
     Indication: CONTRACEPTION
     Dosage: CONTINUING: NO
     Route: 067
     Dates: start: 20060401, end: 20060501

REACTIONS (3)
  - POLLAKIURIA [None]
  - MELANOCYTIC NAEVUS [None]
  - DEEP VEIN THROMBOSIS [None]
